FAERS Safety Report 7934994-4 (Version None)
Quarter: 2011Q4

REPORT INFORMATION
  Report Type: 
  Country: None (occurrence: None)
  Receive Date: 20111122
  Receipt Date: 20111116
  Transmission Date: 20120403
  Serious: Yes (Death)
  Sender: FDA-Public Use
  Company Number: GB-TEVA-309901ISR

PATIENT
  Age: 64 Year
  Sex: Male
  Weight: 101 kg

DRUGS (22)
  1. IRBESARTAN [Concomitant]
     Dates: start: 20110725, end: 20110822
  2. METFORMIN HCL [Concomitant]
     Dates: start: 20110725, end: 20110822
  3. PREGABALIN [Concomitant]
     Dates: start: 20110912, end: 20111027
  4. TRAMADOL HCL [Concomitant]
     Dates: start: 20111017
  5. TRAZODONE HCL [Suspect]
     Dates: start: 20111020
  6. BUMETANIDE [Concomitant]
     Dates: start: 20110725, end: 20110822
  7. PREGABALIN [Concomitant]
     Dates: start: 20110830, end: 20110913
  8. DIAZEPAM [Concomitant]
     Dates: start: 20110921, end: 20110927
  9. AMITRIPTYLINE HCL [Concomitant]
     Dates: start: 20110725, end: 20110822
  10. ACETAMINOPHEN [Concomitant]
     Dates: start: 20111017
  11. NOVOLOG MIX 70/30 [Concomitant]
     Dates: start: 20110921, end: 20111019
  12. BUMETANIDE [Concomitant]
     Dates: start: 20110923
  13. EZETIMIBE [Concomitant]
     Dates: start: 20110725, end: 20110822
  14. AMLODIPINE [Concomitant]
     Dates: start: 20110725, end: 20110822
  15. ATENOLOL [Concomitant]
     Dates: start: 20110725, end: 20110822
  16. ATORVASTATIN [Concomitant]
     Dates: start: 20110725, end: 20110822
  17. DOMPERIDONE [Concomitant]
     Dates: start: 20110830
  18. ATENOLOL [Concomitant]
     Dates: start: 20111020
  19. AMLODIPINE [Concomitant]
     Dates: start: 20111020
  20. LANSOPRAZOLE [Concomitant]
     Dates: start: 20110725, end: 20110822
  21. NOVOLOG MIX 70/30 [Concomitant]
     Dates: start: 20110725, end: 20110822
  22. LANSOPRAZOLE [Concomitant]
     Dates: start: 20110923

REACTIONS (1)
  - ACUTE LEFT VENTRICULAR FAILURE [None]
